FAERS Safety Report 25585713 (Version 2)
Quarter: 2025Q3

REPORT INFORMATION
  Report Type: Spontaneous
  Country: CA (occurrence: CA)
  Receive Date: 20250721
  Receipt Date: 20250721
  Transmission Date: 20251020
  Serious: Yes (Life-Threatening)
  Sender: PFIZER
  Company Number: CA-PFIZER INC-202500145626

PATIENT
  Age: 21 Year
  Sex: Female
  Weight: 51 kg

DRUGS (8)
  1. SOLU-CORTEF [Suspect]
     Active Substance: HYDROCORTISONE SODIUM SUCCINATE
  2. INFLIXIMAB [Concomitant]
     Active Substance: INFLIXIMAB
     Indication: Ankylosing spondylitis
     Route: 042
     Dates: start: 20250602
  3. INFLIXIMAB [Concomitant]
     Active Substance: INFLIXIMAB
     Route: 042
     Dates: start: 20250602
  4. PREDNISOLONE [Concomitant]
     Active Substance: PREDNISOLONE
     Route: 048
  5. PREGABALIN [Concomitant]
     Active Substance: PREGABALIN
  6. MESALAMINE [Concomitant]
     Active Substance: MESALAMINE
  7. IRON SUCROSE [Concomitant]
     Active Substance: IRON SUCROSE
  8. MESALAMINE [Concomitant]
     Active Substance: MESALAMINE

REACTIONS (1)
  - Treatment failure [Unknown]
